FAERS Safety Report 9967272 (Version 1)
Quarter: 2014Q1

REPORT INFORMATION
  Report Type: Report from Study
  Country: US (occurrence: US)
  Receive Date: 20140305
  Receipt Date: 20140305
  Transmission Date: 20141002
  Serious: No
  Sender: FDA-Public Use
  Company Number: US-ABBVIE-13P-163-1137189-00

PATIENT
  Sex: Male
  Weight: 127.12 kg

DRUGS (5)
  1. HUMIRA [Suspect]
     Indication: CROHN^S DISEASE
     Dates: start: 2009, end: 2010
  2. ASACOL [Concomitant]
     Indication: CROHN^S DISEASE
  3. AZATHIOPRINE [Concomitant]
     Indication: CROHN^S DISEASE
  4. ADVAIR [Concomitant]
     Indication: ASTHMA
  5. ALBUTEROL [Concomitant]
     Indication: ASTHMA

REACTIONS (3)
  - Crohn^s disease [Not Recovered/Not Resolved]
  - Crohn^s disease [Not Recovered/Not Resolved]
  - Arthralgia [Not Recovered/Not Resolved]
